FAERS Safety Report 10619146 (Version 1)
Quarter: 2014Q4

REPORT INFORMATION
  Report Type: Spontaneous
  Country: DE (occurrence: None)
  Receive Date: 20141126
  Receipt Date: 20141126
  Transmission Date: 20150529
  Serious: Yes (Hospitalization)
  Sender: FDA-Public Use
  Company Number: 14X-062-1197792-00

PATIENT
  Age: 22 Year
  Sex: Female

DRUGS (14)
  1. FOLSAN [Concomitant]
     Active Substance: FOLIC ACID
  2. DIAZEPAM (DIAZEPAM) [Concomitant]
     Active Substance: DIAZEPAM
  3. AMPICILLIN (AMPICILLIN) [Concomitant]
     Active Substance: AMPICILLIN
  4. NEOSTIGMINE [Concomitant]
     Active Substance: NEOSTIGMINE
  5. LAMTORIGINE (LAMOTRIGINE) (LAMOTRIGINE) [Concomitant]
  6. LORAZEPAM (LORAZEPAM) (LORAZEPAM) [Concomitant]
     Active Substance: LORAZEPAM
  7. PROPOFOL (PROPOFOL) [Concomitant]
     Active Substance: PROPOFOL
  8. VITAMIN B12 [Concomitant]
     Active Substance: CYANOCOBALAMIN
  9. KEPPRA XR [Suspect]
     Active Substance: LEVETIRACETAM
     Indication: EPILEPSY
     Dosage: 750 MG (250 MG 3 IN 1 D)
     Route: 048
  10. CEFUROXIME SODIUM. [Concomitant]
     Active Substance: CEFUROXIME SODIUM
  11. ERGENYL CHRONO [Suspect]
     Active Substance: VALPROIC ACID
     Indication: EPILEPSY
     Dosage: 3600 MG (1200 MG 3 IN 1 D)
     Route: 048
     Dates: start: 20130625
  12. VITAMIN B6 [Concomitant]
     Active Substance: PYRIDOXINE HYDROCHLORIDE
  13. PASPERTIN [Concomitant]
     Active Substance: METOCLOPRAMIDE HYDROCHLORIDE
  14. MIDAZOLAM [Concomitant]
     Active Substance: MIDAZOLAM\MIDAZOLAM HYDROCHLORIDE

REACTIONS (10)
  - Vitamin B12 deficiency [None]
  - Caesarean section [None]
  - Premature delivery [None]
  - Vitamin B6 deficiency [None]
  - Congenital anomaly in offspring [None]
  - Urinary tract infection [None]
  - Seizure [None]
  - Maternal exposure during pregnancy [None]
  - Ultrasound Doppler abnormal [None]
  - Ileus paralytic [None]
